FAERS Safety Report 6271366-5 (Version None)
Quarter: 2009Q3

REPORT INFORMATION
  Report Type: 
  Country: None (occurrence: None)
  Receive Date: 20090717
  Receipt Date: 20090708
  Transmission Date: 20100115
  Serious: Yes (Hospitalization, Other)
  Sender: FDA-Public Use
  Company Number: US-ROCHE-573375

PATIENT
  Sex: Female

DRUGS (2)
  1. BONIVA [Suspect]
     Indication: OSTEOPOROSIS
     Route: 048
     Dates: start: 20060927, end: 20070609
  2. FOSAMAX [Suspect]
     Indication: OSTEOPOROSIS
     Route: 048
     Dates: start: 20010622, end: 20020301

REACTIONS (5)
  - ANXIETY [None]
  - DEPRESSION [None]
  - ENDODONTIC PROCEDURE [None]
  - OSTEONECROSIS [None]
  - PAIN [None]
